FAERS Safety Report 16771869 (Version 4)
Quarter: 2020Q4

REPORT INFORMATION
  Report Type: Spontaneous
  Country: JP (occurrence: JP)
  Receive Date: 20190904
  Receipt Date: 20201006
  Transmission Date: 20210113
  Serious: Yes (Life-Threatening, Hospitalization, Disabling, Other)
  Sender: FDA-Public Use
  Company Number: JP-BRISTOL-MYERS SQUIBB COMPANY-BMS-2019-085645

PATIENT
  Age: 68 Year
  Sex: Male
  Weight: 61 kg

DRUGS (1)
  1. OPDIVO [Suspect]
     Active Substance: NIVOLUMAB
     Indication: GASTRIC CANCER
     Dosage: 240 MILLIGRAM
     Route: 041
     Dates: start: 20190305, end: 20190806

REACTIONS (6)
  - Cognitive disorder [Unknown]
  - Immune-mediated encephalitis [Recovered/Resolved with Sequelae]
  - Muscular weakness [Unknown]
  - Abnormal behaviour [Unknown]
  - Memory impairment [Unknown]
  - Altered state of consciousness [Unknown]

NARRATIVE: CASE EVENT DATE: 20190812
